FAERS Safety Report 8908166 (Version 3)
Quarter: 2012Q4

REPORT INFORMATION
  Report Type: 
  Country: CA (occurrence: CA)
  Receive Date: 20121113
  Receipt Date: 20121213
  Transmission Date: 20130627
  Serious: Yes (Death, Hospitalization, Other)
  Sender: FDA-Public Use
  Company Number: PHHY2012CA084901

PATIENT
  Age: 50 Year
  Sex: Female

DRUGS (2)
  1. SANDOSTATIN LAR [Suspect]
     Indication: NEUROENDOCRINE TUMOUR
     Dosage: 30 mg, every four weeks
     Route: 030
     Dates: start: 20120925
  2. IMODIUM [Concomitant]

REACTIONS (10)
  - Death [Fatal]
  - Drug level increased [Unknown]
  - Dehydration [Unknown]
  - Blood pressure increased [Unknown]
  - Influenza [Unknown]
  - Nausea [Unknown]
  - Headache [Unknown]
  - Abdominal discomfort [Unknown]
  - Vomiting [Unknown]
  - Abdominal pain upper [Unknown]
